FAERS Safety Report 10395562 (Version 1)
Quarter: 2014Q1

REPORT INFORMATION
  Report Type: Spontaneous
  Country: US (occurrence: None)
  Receive Date: 20130226
  Receipt Date: 20130226
  Transmission Date: 20141002
  Serious: Yes (Hospitalization)
  Sender: FDA-Public Use
  Company Number: PHEH2011US05177

PATIENT
  Age: 74 Year
  Sex: Male

DRUGS (2)
  1. TOBI (TOBRAMYCIN) SOL. AEROSOL METERED DOSE INH. [Suspect]
     Indication: LUNG CARCINOMA CELL TYPE UNSPECIFIED STAGE 0
     Dosage: 300 MG, TWICE DAILY VIA NEBULIZER IN A CYCLE OF 28 DAYS ON AND 28 DAYS OFF, INHALATION
     Route: 055
     Dates: start: 20090828
  2. TARCEVA (ERLOTINIB) [Concomitant]

REACTIONS (2)
  - Pneumonia [None]
  - Upper respiratory tract infection [None]
